FAERS Safety Report 4839146-2 (Version None)
Quarter: 2005Q4

REPORT INFORMATION
  Report Type: 
  Country: None (occurrence: None)
  Receive Date: 20051031
  Receipt Date: 20050902
  Transmission Date: 20060501
  Serious: No
  Sender: FDA-Public Use
  Company Number: 200516632US

PATIENT
  Age: 48 Year
  Sex: Female

DRUGS (3)
  1. KETEK [Suspect]
     Indication: BRONCHITIS
     Dosage: PO
     Route: 048
  2. PSEUDOEPHEDRINE HYDROCHLORIDE [Concomitant]
  3. FEXOFENADINE (ALLEGRA-D) [Concomitant]

REACTIONS (1)
  - PAIN IN EXTREMITY [None]
